FAERS Safety Report 7369517-4 (Version None)
Quarter: 2011Q1

REPORT INFORMATION
  Report Type: 
  Country: None (occurrence: None)
  Receive Date: 20110317
  Receipt Date: 20110317
  Transmission Date: 20110831
  Serious: Yes (Life-Threatening, Hospitalization)
  Sender: FDA-Public Use
  Company Number: None

PATIENT
  Age: 61 Year
  Sex: Female
  Weight: 104.3273 kg

DRUGS (3)
  1. PRISTIQ [Suspect]
     Indication: ANXIETY
     Dosage: 50 1/2 PER WK
  2. VERAPAMIL EXTENDED-RELEASE [Concomitant]
  3. LISINOPRIL [Concomitant]

REACTIONS (3)
  - THROMBOSIS [None]
  - HYPERTENSION [None]
  - PULMONARY THROMBOSIS [None]
